FAERS Safety Report 11334020 (Version 1)
Quarter: 2015Q3

REPORT INFORMATION
  Report Type: Spontaneous
  Country: US (occurrence: US)
  Receive Date: 20150803
  Receipt Date: 20150803
  Transmission Date: 20151125
  Serious: Yes (Other)
  Sender: FDA-Public Use
  Company Number: US-SA-2014SA166496

PATIENT
  Sex: Male

DRUGS (4)
  1. AMBIEN [Suspect]
     Active Substance: ZOLPIDEM TARTRATE
     Dosage: 10 MG AT NIGHT / 5 MG DAYTIME FOR PAIN RELIEF.
     Route: 048
  2. HYDROCODONE [Concomitant]
     Active Substance: HYDROCODONE
     Indication: PAIN
     Dosage: DOSE: AS PRESCRIBED
     Route: 065
     Dates: start: 2007
  3. AMBIEN [Suspect]
     Active Substance: ZOLPIDEM TARTRATE
     Indication: SLEEP DISORDER
     Dosage: 10 MG AT NIGHT / 5 MG DAYTIME FOR PAIN RELIEF.
     Route: 048
  4. NAPROXEN. [Concomitant]
     Active Substance: NAPROXEN
     Dosage: DOSE: AS PRESCRIBED
     Route: 065
     Dates: start: 2007

REACTIONS (2)
  - Drug prescribing error [Unknown]
  - Drug dependence [Unknown]
